FAERS Safety Report 6037398-7 (Version None)
Quarter: 2009Q1

REPORT INFORMATION
  Report Type: 
  Country: None (occurrence: None)
  Receive Date: 20090114
  Receipt Date: 20081230
  Transmission Date: 20090719
  Serious: Yes (Death, Hospitalization)
  Sender: FDA-Public Use
  Company Number: TH-PFIZER INC-2008158760

PATIENT

DRUGS (4)
  1. CELEBREX [Suspect]
     Indication: ARTHRALGIA
     Dosage: 200 MG, 2X/DAY
     Route: 048
     Dates: end: 20081201
  2. CELEBREX [Suspect]
     Route: 048
  3. ANTIHYPERTENSIVES [Concomitant]
     Indication: HYPERTENSION
  4. ANTI-DIABETICS [Suspect]
     Indication: DIABETES MELLITUS

REACTIONS (2)
  - DEATH [None]
  - SYNCOPE [None]
